FAERS Safety Report 13689767 (Version 1)
Quarter: 2017Q2

REPORT INFORMATION
  Report Type: Spontaneous
  Country: CH (occurrence: CH)
  Receive Date: 20170626
  Receipt Date: 20170626
  Transmission Date: 20170830
  Serious: Yes (Hospitalization)
  Sender: FDA-Public Use
  Company Number: CH-TEVA-779698ISR

PATIENT
  Age: 84 Year
  Sex: Female
  Weight: 70.9 kg

DRUGS (6)
  1. FLAMON -120 RETARD OPTICAPS [Suspect]
     Active Substance: VERAPAMIL HYDROCHLORIDE
     Route: 048
  2. FLUDEX SR COMPRIMES RETARD [Suspect]
     Active Substance: INDAPAMIDE
     Route: 048
  3. ATORVASTATIN [Concomitant]
     Active Substance: ATORVASTATIN
     Dosage: 20 MILLIGRAM DAILY;
     Route: 048
  4. VI-DE 3 [Concomitant]
     Active Substance: CHOLECALCIFEROL
     Dosage: 2 GTT DAILY;
  5. ASPIRIN CARDIO 100 FILMTABLETTEN [Concomitant]
     Active Substance: ASPIRIN
     Dosage: 100 MILLIGRAM DAILY;
  6. CALCIMAGON D3 [Concomitant]
     Active Substance: CALCIUM\CHOLECALCIFEROL
     Dosage: 1 DOSAGE FORMS DAILY;

REACTIONS (2)
  - Hypokalaemia [Recovered/Resolved]
  - Supraventricular tachycardia [Unknown]

NARRATIVE: CASE EVENT DATE: 20170207
